FAERS Safety Report 6849514-5 (Version None)
Quarter: 2010Q3

REPORT INFORMATION
  Report Type: 
  Country: None (occurrence: None)
  Receive Date: 20100716
  Receipt Date: 20071009
  Transmission Date: 20110219
  Serious: No
  Sender: FDA-Public Use
  Company Number: US-PFIZER INC-2007082587

PATIENT
  Age: 21 Year
  Sex: Male
  Weight: 87.272 kg

DRUGS (3)
  1. CHANTIX [Suspect]
     Indication: SMOKING CESSATION THERAPY
     Dates: start: 20070901
  2. HYDROCHLOROTHIAZIDE [Concomitant]
  3. CEPHALEXIN [Concomitant]

REACTIONS (1)
  - DYSGEUSIA [None]
